FAERS Safety Report 7303888-X (Version None)
Quarter: 2011Q1

REPORT INFORMATION
  Report Type: 
  Country: None (occurrence: None)
  Receive Date: 20110221
  Receipt Date: 20110214
  Transmission Date: 20110831
  Serious: Yes (Hospitalization)
  Sender: FDA-Public Use
  Company Number: B0700438A

PATIENT
  Sex: Male
  Weight: 46 kg

DRUGS (25)
  1. MUCODYNE [Concomitant]
     Indication: EMPHYSEMA
     Dosage: 1500MG PER DAY
     Route: 048
  2. UNIPHYL [Concomitant]
     Dosage: 200MG PER DAY
     Route: 048
     Dates: start: 20100611
  3. DASEN [Concomitant]
     Dosage: 30MG PER DAY
     Route: 048
     Dates: start: 20100210, end: 20100222
  4. AVELOX [Concomitant]
     Indication: PROPHYLAXIS
     Dosage: 400MG PER DAY
     Route: 048
     Dates: start: 20100304, end: 20100306
  5. ASTOMIN [Concomitant]
     Indication: PROPHYLAXIS
     Dosage: 60MG PER DAY
     Route: 048
     Dates: start: 20100420, end: 20100424
  6. TRANSAMIN [Concomitant]
     Indication: PROPHYLAXIS
     Dosage: 750MG PER DAY
     Route: 048
     Dates: start: 20100210, end: 20100222
  7. CALBLOCK [Concomitant]
     Dosage: 8MG PER DAY
     Route: 048
     Dates: start: 20100210
  8. MUCOSTA [Concomitant]
     Dosage: 300MG PER DAY
     Route: 048
     Dates: start: 20100225, end: 20100227
  9. SERETIDE [Suspect]
     Indication: EMPHYSEMA
     Dosage: 500MCG PER DAY
     Route: 055
     Dates: start: 20090924
  10. DASEN [Concomitant]
     Indication: PROPHYLAXIS
     Dosage: 30MG PER DAY
     Route: 048
     Dates: start: 20091228, end: 20100103
  11. MEPTIN AIR [Concomitant]
     Indication: EMPHYSEMA
     Route: 055
     Dates: start: 20100113
  12. COR-TYZINE PEDIATRIC NASAL DROPS [Concomitant]
     Route: 045
     Dates: start: 20100611, end: 20100731
  13. KIPRES [Concomitant]
     Dosage: 10MG PER DAY
     Route: 048
     Dates: start: 20100225
  14. SOLDEM 3A [Concomitant]
     Dosage: 500ML PER DAY
     Route: 042
     Dates: start: 20100508, end: 20100512
  15. PREDNISOLONE [Concomitant]
     Dosage: 15MG PER DAY
     Route: 048
     Dates: start: 20100225, end: 20100227
  16. CELESTAMINE TAB [Concomitant]
     Route: 048
     Dates: start: 20100210, end: 20100212
  17. ALLELOCK [Concomitant]
     Dosage: 5MG PER DAY
     Route: 048
     Dates: start: 20100304
  18. CLARITIN REDITABS [Concomitant]
     Dosage: 10MG PER DAY
     Route: 048
     Dates: start: 20100304
  19. URIEF [Concomitant]
     Dosage: 8MG PER DAY
     Route: 048
  20. UNIPHYL [Concomitant]
     Indication: EMPHYSEMA
     Dosage: 400MG PER DAY
     Route: 048
     Dates: start: 20091124, end: 20100610
  21. CHINESE MEDICINE [Concomitant]
     Indication: PROPHYLAXIS
     Dosage: 7.5G PER DAY
     Route: 048
     Dates: start: 20091228, end: 20100103
  22. CHINESE MEDICINE [Concomitant]
     Dosage: 7.5G PER DAY
     Route: 048
     Dates: start: 20100210, end: 20100301
  23. CHINESE MEDICINE [Concomitant]
     Indication: EMPHYSEMA
     Dosage: 7.5G PER DAY
     Route: 048
     Dates: start: 20100210
  24. MUCOSOLVAN [Concomitant]
     Indication: EMPHYSEMA
     Dosage: 45MG PER DAY
     Route: 048
     Dates: start: 20100225
  25. ALTAT [Concomitant]
     Dosage: 150MG PER DAY
     Route: 048
     Dates: start: 20100225, end: 20100227

REACTIONS (2)
  - BRONCHITIS [None]
  - PNEUMONIA [None]
